FAERS Safety Report 5340494-0 (Version None)
Quarter: 2007Q2

REPORT INFORMATION
  Report Type: 
  Country: None (occurrence: None)
  Receive Date: 20070531
  Receipt Date: 20070523
  Transmission Date: 20071010
  Serious: Yes (Other)
  Sender: FDA-Public Use
  Company Number: US-PFIZER INC-2007042094

PATIENT
  Sex: Female
  Weight: 68.181 kg

DRUGS (4)
  1. CELEBREX [Suspect]
     Indication: OSTEOARTHRITIS
  2. IBUPROFEN [Concomitant]
     Indication: OSTEOARTHRITIS
  3. SYNTHROID [Concomitant]
  4. ALL OTHER THERAPEUTIC PRODUCTS [Concomitant]

REACTIONS (2)
  - HAEMORRHAGE [None]
  - ULCER [None]
